FAERS Safety Report 9496787 (Version 1)
Quarter: 2013Q3

REPORT INFORMATION
  Report Type: Spontaneous
  Country: CN (occurrence: CN)
  Receive Date: 20130904
  Receipt Date: 20130904
  Transmission Date: 20140515
  Serious: Yes (Other)
  Sender: FDA-Public Use
  Company Number: CN-PFIZER INC-2013253960

PATIENT
  Age: 13 Year
  Sex: Male
  Weight: 40 kg

DRUGS (1)
  1. VENLAFAXINE HCL [Suspect]
     Indication: EMOTIONAL DISORDER
     Dosage: 1 DF, 1X/DAY
     Route: 048
     Dates: start: 20120510, end: 20120513

REACTIONS (6)
  - Hepatic function abnormal [Recovered/Resolved]
  - Cardiac enzymes increased [Recovered/Resolved]
  - Palpitations [Recovered/Resolved]
  - Dizziness [Recovered/Resolved]
  - Abdominal pain [Recovered/Resolved]
  - Vomiting [Recovered/Resolved]
